FAERS Safety Report 6175079-X (Version None)
Quarter: 2009Q2

REPORT INFORMATION
  Report Type: 
  Country: None (occurrence: None)
  Receive Date: 20090430
  Receipt Date: 20090220
  Transmission Date: 20091009
  Serious: No
  Sender: FDA-Public Use
  Company Number: US-ASTRAZENECA-2009UW04903

PATIENT
  Age: 41 Year
  Sex: Male
  Weight: 76.2 kg

DRUGS (7)
  1. NEXIUM [Suspect]
     Indication: GASTROOESOPHAGEAL REFLUX DISEASE
     Route: 048
     Dates: start: 20080901
  2. ZANTAC [Concomitant]
     Indication: GASTROOESOPHAGEAL REFLUX DISEASE
  3. FLOVENT [Concomitant]
     Indication: ASTHMA
  4. CLARITIN [Concomitant]
  5. NASONEX [Concomitant]
  6. ALBUTEROL [Concomitant]
  7. PROVENTIL [Concomitant]

REACTIONS (2)
  - GASTROOESOPHAGEAL REFLUX DISEASE [None]
  - NASOPHARYNGITIS [None]
